FAERS Safety Report 7469228-0 (Version None)
Quarter: 2011Q2

REPORT INFORMATION
  Report Type: 
  Country: None (occurrence: None)
  Receive Date: 20110510
  Receipt Date: 20110421
  Transmission Date: 20111010
  Serious: No
  Sender: FDA-Public Use
  Company Number: US-B.I. PHARMACEUTICALS,INC./RIDGEFIELD-2011-BP-00725BP

PATIENT
  Sex: Female
  Weight: 65.77 kg

DRUGS (9)
  1. PRADAXA [Suspect]
     Indication: ATRIAL FIBRILLATION
     Dosage: 300 MG
     Route: 048
     Dates: start: 20101209, end: 20101229
  2. MULTI-VITAMIN [Concomitant]
     Dosage: DAILY
  3. SKELAXIN [Concomitant]
     Dosage: 1200 MG
  4. DETROL [Concomitant]
     Indication: BLADDER DISORDER
     Dosage: 1 MG
     Route: 048
  5. ATENOLOL [Concomitant]
     Indication: HYPERTENSION
     Route: 048
  6. PRADAXA [Suspect]
     Indication: INTERNATIONAL NORMALISED RATIO FLUCTUATION
     Dosage: 150 MG
     Route: 048
     Dates: start: 20110103
  7. ASPIRIN [Concomitant]
     Dosage: 325 MG
  8. ARICEPT [Concomitant]
     Indication: DEMENTIA
     Dosage: 10 MG
     Route: 048
  9. CALCIUM [Concomitant]

REACTIONS (4)
  - DIZZINESS [None]
  - ABDOMINAL PAIN UPPER [None]
  - ASTHENIA [None]
  - RECTAL HAEMORRHAGE [None]
